FAERS Safety Report 18221782 (Version 1)
Quarter: 2020Q3

REPORT INFORMATION
  Report Type: Spontaneous
  Country: GB (occurrence: GB)
  Receive Date: 20200902
  Receipt Date: 20200902
  Transmission Date: 20201103
  Serious: Yes (Other)
  Sender: FDA-Public Use
  Company Number: GB-ACCORD-198627

PATIENT
  Age: 66 Year
  Sex: Male
  Weight: 50.8 kg

DRUGS (3)
  1. CLEXANE [Concomitant]
     Active Substance: ENOXAPARIN SODIUM
  2. SPIRONOLACTONE. [Suspect]
     Active Substance: SPIRONOLACTONE
     Indication: FLUID RETENTION
     Route: 048
     Dates: start: 20200808, end: 20200811
  3. RISEDRONATE SODIUM/RISEDRONIC ACID [Concomitant]
     Active Substance: RISEDRONATE SODIUM

REACTIONS (2)
  - Dyspepsia [Recovering/Resolving]
  - Diarrhoea [Recovering/Resolving]

NARRATIVE: CASE EVENT DATE: 20200809
